FAERS Safety Report 24644169 (Version 2)
Quarter: 2024Q4

REPORT INFORMATION
  Report Type: Spontaneous
  Country: US (occurrence: US)
  Receive Date: 20241120
  Receipt Date: 20241218
  Transmission Date: 20250115
  Serious: Yes (Other)
  Sender: TEVA
  Company Number: US-TEVA-VS-3264549

PATIENT
  Age: 67 Year
  Sex: Male

DRUGS (2)
  1. ROCURONIUM [Suspect]
     Active Substance: ROCURONIUM BROMIDE
     Indication: Elective surgery
     Route: 065
  2. SUCCINYLCHOLINE [Concomitant]
     Active Substance: SUCCINYLCHOLINE\SUCCINYLCHOLINE CHLORIDE
     Indication: Elective surgery
     Route: 065

REACTIONS (11)
  - Anaphylactic reaction [Unknown]
  - Hypotension [Unknown]
  - Wheezing [Unknown]
  - Abdominal pain [Unknown]
  - Nausea [Unknown]
  - Asthenia [Unknown]
  - Syncope [Unknown]
  - Dyspnoea [Unknown]
  - Flushing [Unknown]
  - Urticaria thermal [Unknown]
  - Headache [Unknown]
